FAERS Safety Report 6877287-9 (Version None)
Quarter: 2010Q3

REPORT INFORMATION
  Report Type: 
  Country: None (occurrence: None)
  Receive Date: 20100714
  Receipt Date: 20100630
  Transmission Date: 20110219
  Serious: Yes (Hospitalization, Other)
  Sender: FDA-Public Use
  Company Number: AECAN201000248

PATIENT
  Age: 78 Year
  Sex: Female
  Weight: 60 kg

DRUGS (7)
  1. GAMUNEX [Suspect]
     Indication: GUILLAIN-BARRE SYNDROME
     Dosage: 385 GM; TOTAL; IV
     Route: 042
     Dates: start: 20100512, end: 20100517
  2. GAMUNEX [Suspect]
  3. GAMUNEX [Suspect]
  4. GAMUNEX [Suspect]
  5. GAMUNEX [Suspect]
  6. GAMUNEX [Suspect]
  7. GAMUNEX [Suspect]
     Indication: GUILLAIN-BARRE SYNDROME
     Dosage: 30 GM; TOTAL; IV
     Route: 042
     Dates: start: 20100512, end: 20100517

REACTIONS (5)
  - DRUG ADMINISTRATION ERROR [None]
  - INAPPROPRIATE SCHEDULE OF DRUG ADMINISTRATION [None]
  - INCORRECT DOSE ADMINISTERED [None]
  - MULTI-ORGAN FAILURE [None]
  - RESPIRATORY FAILURE [None]
